FAERS Safety Report 21054928 (Version 3)
Quarter: 2022Q3

REPORT INFORMATION
  Report Type: Spontaneous
  Country: DE (occurrence: DE)
  Receive Date: 20220707
  Receipt Date: 20220825
  Transmission Date: 20221027
  Serious: Yes (Other)
  Sender: FDA-Public Use
  Company Number: DE-SCALL-2022-DE-000078

PATIENT
  Age: 77 Year
  Sex: Male

DRUGS (7)
  1. DUTASTERIDE\TAMSULOSIN HYDROCHLORIDE [Suspect]
     Active Substance: DUTASTERIDE\TAMSULOSIN HYDROCHLORIDE
     Indication: Product used for unknown indication
     Dosage: 0.5/0.4 MG
     Route: 065
     Dates: start: 20200422
  2. TAMSULOSIN HYDROCHLORIDE [Concomitant]
     Active Substance: TAMSULOSIN HYDROCHLORIDE
     Dates: start: 2021
  3. PANTOPRAZOLE [Concomitant]
     Active Substance: PANTOPRAZOLE
     Route: 065
  4. RAMIPRIL [Concomitant]
     Active Substance: RAMIPRIL
     Route: 065
  5. BISOPROLOL [Concomitant]
     Active Substance: BISOPROLOL
     Route: 065
  6. NALOXONE HYDROCHLORIDE\TILIDINE HYDROCHLORIDE [Concomitant]
     Active Substance: NALOXONE HYDROCHLORIDE\TILIDINE HYDROCHLORIDE
     Route: 065
  7. PREGABALIN [Concomitant]
     Active Substance: PREGABALIN
     Route: 065

REACTIONS (15)
  - Skull fracture [Unknown]
  - Anosmia [Unknown]
  - Product complaint [Unknown]
  - Abdominal pain [Unknown]
  - Symptom recurrence [Unknown]
  - Hyposmia [Unknown]
  - Accident at home [Unknown]
  - Dizziness [Unknown]
  - Parosmia [Recovering/Resolving]
  - Diarrhoea [Recovering/Resolving]
  - Abnormal faeces [Unknown]
  - Urine odour abnormal [Unknown]
  - Flatulence [Unknown]
  - Eructation [Unknown]
  - Taste disorder [Unknown]

NARRATIVE: CASE EVENT DATE: 20200101
